FAERS Safety Report 18206656 (Version 1)
Quarter: 2020Q3

REPORT INFORMATION
  Report Type: Spontaneous
  Country: US (occurrence: US)
  Receive Date: 20200827
  Receipt Date: 20200827
  Transmission Date: 20201103
  Serious: Yes (Other)
  Sender: FDA-Public Use
  Company Number: None

PATIENT
  Age: 69 Year
  Sex: Female

DRUGS (1)
  1. GAMUNEX?C [Suspect]
     Active Substance: HUMAN IMMUNOGLOBULIN G
     Dosage: ?          OTHER FREQUENCY:EVERY 3 WEEKS;?

REACTIONS (4)
  - Headache [None]
  - Infusion related reaction [None]
  - Feeling abnormal [None]
  - Dysphagia [None]

NARRATIVE: CASE EVENT DATE: 20200824
